FAERS Safety Report 25769597 (Version 1)
Quarter: 2025Q3

REPORT INFORMATION
  Report Type: Spontaneous
  Country: CN (occurrence: CN)
  Receive Date: 20250906
  Receipt Date: 20250906
  Transmission Date: 20251021
  Serious: Yes (Other)
  Sender: AMGEN
  Company Number: CN-AMGEN-CHNSP2025174582

PATIENT
  Age: 60 Year
  Sex: Male
  Weight: 65 kg

DRUGS (1)
  1. XGEVA [Suspect]
     Active Substance: DENOSUMAB
     Indication: Plasma cell myeloma
     Dosage: 120 MILLIGRAM, Q4WK (28)
     Route: 058
     Dates: start: 20250827, end: 20250827

REACTIONS (1)
  - Myalgia [Recovering/Resolving]

NARRATIVE: CASE EVENT DATE: 20250827
